FAERS Safety Report 7196198-5 (Version None)
Quarter: 2010Q4

REPORT INFORMATION
  Report Type: 
  Country: None (occurrence: None)
  Receive Date: 20101223
  Receipt Date: 20101019
  Transmission Date: 20110411
  Serious: No
  Sender: FDA-Public Use
  Company Number: US-AMGEN-USASP2010000934

PATIENT

DRUGS (2)
  1. ENBREL [Suspect]
     Indication: RHEUMATOID ARTHRITIS
     Dates: start: 20060218
  2. HUMIRA [Concomitant]

REACTIONS (7)
  - ARTHRALGIA [None]
  - ARTHRITIS [None]
  - DRUG INEFFECTIVE [None]
  - DYSGEUSIA [None]
  - HEPATIC ENZYME INCREASED [None]
  - JOINT STIFFNESS [None]
  - PAROSMIA [None]
